FAERS Safety Report 11763489 (Version 1)
Quarter: 2015Q4

REPORT INFORMATION
  Report Type: Spontaneous
  Country: US (occurrence: US)
  Receive Date: 20151120
  Receipt Date: 20151120
  Transmission Date: 20160304
  Serious: No
  Sender: FDA-Public Use
  Company Number: US-ELI_LILLY_AND_COMPANY-US201303009794

PATIENT
  Sex: Male

DRUGS (2)
  1. FORTEO [Suspect]
     Active Substance: TERIPARATIDE
     Indication: OSTEOPOROSIS
     Dosage: UNK, UNKNOWN
     Route: 065
     Dates: start: 201301
  2. CALCIUM [Concomitant]
     Active Substance: CALCIUM
     Dosage: UNK, BID
     Route: 065

REACTIONS (3)
  - Vitamin D decreased [Unknown]
  - Dizziness [Unknown]
  - Blood calcium increased [Unknown]
